FAERS Safety Report 19899594 (Version 1)
Quarter: 2021Q3

REPORT INFORMATION
  Report Type: Spontaneous
  Country: IE (occurrence: IE)
  Receive Date: 20210929
  Receipt Date: 20210929
  Transmission Date: 20211014
  Serious: Yes (Death, Hospitalization, Other)
  Sender: FDA-Public Use
  Company Number: IE-GLAXOSMITHKLINE-IECH2021067621

PATIENT
  Age: 52 Year
  Sex: Male

DRUGS (1)
  1. IBUPROFEN. [Suspect]
     Active Substance: IBUPROFEN
     Indication: PAIN IN EXTREMITY
     Dosage: 400 MG

REACTIONS (4)
  - Lactic acidosis [Fatal]
  - Blood creatinine increased [Fatal]
  - Contraindicated product administered [Fatal]
  - Adverse drug reaction [Fatal]

NARRATIVE: CASE EVENT DATE: 20210901
